FAERS Safety Report 20165074 (Version 3)
Quarter: 2022Q1

REPORT INFORMATION
  Report Type: Report from Study
  Country: CN (occurrence: CN)
  Receive Date: 20211209
  Receipt Date: 20220228
  Transmission Date: 20220424
  Serious: Yes (Hospitalization)
  Sender: FDA-Public Use
  Company Number: CN-SECURA BIO, INC.-2021-SECUR-CN003404

PATIENT

DRUGS (1)
  1. DUVELISIB [Suspect]
     Active Substance: DUVELISIB
     Indication: T-cell lymphoma refractory
     Dosage: 25 MG, BID
     Route: 048
     Dates: start: 20200630, end: 20211024

REACTIONS (1)
  - Cytomegalovirus gastrointestinal infection [Recovered/Resolved]

NARRATIVE: CASE EVENT DATE: 20210904
